FAERS Safety Report 5343275-7 (Version None)
Quarter: 2007Q2

REPORT INFORMATION
  Report Type: 
  Country: None (occurrence: None)
  Receive Date: 20070502
  Receipt Date: 20061012
  Transmission Date: 20071010
  Serious: Yes (Hospitalization)
  Sender: FDA-Public Use
  Company Number: PHEH2006US12834

PATIENT
  Age: 63 Year
  Sex: Female

DRUGS (1)
  1. LOTREL [Suspect]
     Indication: HYPERTENSION

REACTIONS (2)
  - PRURITUS [None]
  - RASH [None]
